FAERS Safety Report 7586623-X (Version None)
Quarter: 2011Q3

REPORT INFORMATION
  Report Type: 
  Country: None (occurrence: None)
  Receive Date: 20110701
  Receipt Date: 20110616
  Transmission Date: 20111222
  Serious: Yes (Hospitalization, Other)
  Sender: FDA-Public Use
  Company Number: US-BAYER-201031639NA

PATIENT
  Sex: Female
  Weight: 97.506 kg

DRUGS (3)
  1. GLUCOPHAGE [Concomitant]
     Dosage: 500 MG, UNK
     Route: 048
  2. YASMIN [Suspect]
     Indication: ACNE
     Dosage: UNK UNK, UNK
     Route: 048
     Dates: start: 20041124, end: 20070701
  3. NAPROXEN [Concomitant]
     Dosage: 550 MG, UNK
     Route: 048
     Dates: start: 20070109

REACTIONS (9)
  - ANHEDONIA [None]
  - BILIARY DYSKINESIA [None]
  - GALLBLADDER DISORDER [None]
  - PAIN [None]
  - CHOLECYSTITIS CHRONIC [None]
  - EMOTIONAL DISTRESS [None]
  - INJURY [None]
  - GASTROINTESTINAL DISORDER [None]
  - GALLBLADDER CHOLESTEROLOSIS [None]
